FAERS Safety Report 25059082 (Version 1)
Quarter: 2025Q1

REPORT INFORMATION
  Report Type: Spontaneous
  Country: US (occurrence: None)
  Receive Date: 20250307
  Receipt Date: 20250307
  Transmission Date: 20250409
  Serious: Yes (Disabling)
  Sender: FDA-CTU
  Company Number: None

PATIENT
  Age: 57 Year
  Sex: Male
  Weight: 72 kg

DRUGS (14)
  1. DUTASTERIDE [Suspect]
     Active Substance: DUTASTERIDE
     Indication: Alopecia
     Dosage: OTHER QUANTITY : 1 CAPSULE(S);?FREQUENCY : DAILY;?
     Route: 048
     Dates: start: 20230616, end: 20240610
  2. minoxidil 2.5mg daily, [Concomitant]
  3. valacyclovir 500mg daily [Concomitant]
  4. L-Tyrosine, [Concomitant]
  5. Vitamin C, [Concomitant]
  6. DHEA, [Concomitant]
  7. DIM, [Concomitant]
  8. D3/K2, [Concomitant]
  9. zinc/copper, [Concomitant]
  10. ashwagondha, [Concomitant]
  11. Acetyl L carnitine, [Concomitant]
  12. creatine, [Concomitant]
  13. GLYCINE [Concomitant]
     Active Substance: GLYCINE
  14. MAGNESIUM [Concomitant]
     Active Substance: MAGNESIUM

REACTIONS (7)
  - Fatigue [None]
  - Cognitive disorder [None]
  - Memory impairment [None]
  - Depression [None]
  - Suicidal ideation [None]
  - Libido decreased [None]
  - Dihydrotestosterone decreased [None]

NARRATIVE: CASE EVENT DATE: 20240119
